FAERS Safety Report 10658843 (Version 2)
Quarter: 2014Q4

REPORT INFORMATION
  Report Type: Spontaneous
  Country: US (occurrence: US)
  Receive Date: 20141217
  Receipt Date: 20141217
  Transmission Date: 20150529
  Serious: No
  Sender: FDA-Public Use
  Company Number: US-ENDO PHARMACEUTICALS INC.-OPCR20140227

PATIENT
  Age: 47 Year
  Sex: Female

DRUGS (1)
  1. OPANA ER [Suspect]
     Active Substance: OXYMORPHONE HYDROCHLORIDE
     Indication: NECK PAIN
     Route: 048
     Dates: start: 20140731

REACTIONS (5)
  - Fall [Unknown]
  - Vomiting [Unknown]
  - Withdrawal syndrome [Not Recovered/Not Resolved]
  - Contusion [Unknown]
  - Pneumonia [Unknown]

NARRATIVE: CASE EVENT DATE: 201409
